FAERS Safety Report 7540693-3 (Version None)
Quarter: 2011Q2

REPORT INFORMATION
  Report Type: 
  Country: None (occurrence: None)
  Receive Date: 20110603
  Receipt Date: 20110523
  Transmission Date: 20111010
  Serious: Yes (Other)
  Sender: FDA-Public Use
  Company Number: DSA_46816_2011

PATIENT

DRUGS (2)
  1. ZOVIRAX [Suspect]
     Indication: HERPES ZOSTER
     Dosage: DF INTRAOCULAR
     Route: 031
  2. VALACYCLOVIR HYDROCHLORIDE [Concomitant]

REACTIONS (3)
  - DRUG RESISTANCE [None]
  - ULCERATIVE KERATITIS [None]
  - OPHTHALMOPLEGIA [None]
